FAERS Safety Report 7353335-7 (Version None)
Quarter: 2011Q1

REPORT INFORMATION
  Report Type: 
  Country: None (occurrence: None)
  Receive Date: 20110315
  Receipt Date: 20110309
  Transmission Date: 20110831
  Serious: Yes (Hospitalization)
  Sender: FDA-Public Use
  Company Number: US-MERCK-1103USA01387

PATIENT
  Sex: Female

DRUGS (2)
  1. ISENTRESS [Suspect]
     Route: 048
  2. TRUVADA [Suspect]
     Route: 065

REACTIONS (3)
  - DIZZINESS [None]
  - PARAESTHESIA [None]
  - HEADACHE [None]
